FAERS Safety Report 4759280-5 (Version None)
Quarter: 2005Q3

REPORT INFORMATION
  Report Type: 
  Country: None (occurrence: None)
  Receive Date: 20050831
  Receipt Date: 20050815
  Transmission Date: 20060218
  Serious: Yes (Hospitalization, Other)
  Sender: FDA-Public Use
  Company Number: 2003IM001073

PATIENT
  Age: 77 Year
  Sex: Female
  Weight: 57.5 kg

DRUGS (14)
  1. INTERFERON GAMMA-1B [Suspect]
     Indication: OVARIAN CANCER
     Dosage: 100 UG, TIW, SUBCUTANEOUS
     Route: 058
     Dates: start: 20030815, end: 20031001
  2. CARBOPLATIN [Suspect]
     Indication: OVARIAN CANCER
     Dosage: 384 MG, Q3W, INTRAVENOUS
     Route: 042
     Dates: start: 20030815, end: 20030926
  3. PACLITAXEL [Suspect]
     Dosage: 278 MG, Q3W, INTRAVENOUS
     Route: 042
     Dates: start: 20030815
  4. TYLENOL [Concomitant]
  5. MAGNESIUM ROUGIER [Concomitant]
  6. ATENOLOL [Concomitant]
  7. AAS [Concomitant]
  8. ATIVAN [Concomitant]
  9. LOZIDE [Concomitant]
  10. DECADRON [Concomitant]
  11. PEPCID [Concomitant]
  12. BENADRYL [Concomitant]
  13. KYTRIL [Concomitant]
  14. TENORMIN [Concomitant]

REACTIONS (3)
  - ATRIAL FIBRILLATION [None]
  - FEBRILE NEUTROPENIA [None]
  - INTESTINAL OBSTRUCTION [None]
